FAERS Safety Report 8386688-1 (Version None)
Quarter: 2012Q2

REPORT INFORMATION
  Report Type: 
  Country: None (occurrence: None)
  Receive Date: 20120525
  Receipt Date: 20120522
  Transmission Date: 20120825
  Serious: Yes (Life-Threatening, Other)
  Sender: FDA-Public Use
  Company Number: BE-SANOFI-AVENTIS-2012SA036163

PATIENT
  Age: 64 Year
  Sex: Female

DRUGS (3)
  1. ENOXAPARIN SODIUM [Suspect]
  2. CISPLATIN [Concomitant]
  3. ENOXAPARIN SODIUM [Suspect]

REACTIONS (7)
  - PLATELET COUNT DECREASED [None]
  - COMA [None]
  - PNEUMONIA [None]
  - EPISTAXIS [None]
  - PYREXIA [None]
  - INJECTION SITE HAEMATOMA [None]
  - HEART RATE INCREASED [None]
